FAERS Safety Report 7513993-0 (Version None)
Quarter: 2011Q2

REPORT INFORMATION
  Report Type: 
  Country: None (occurrence: None)
  Receive Date: 20110531
  Receipt Date: 20110518
  Transmission Date: 20111010
  Serious: Yes (Congenital Anomaly)
  Sender: FDA-Public Use
  Company Number: JP-UCBSA-033424

PATIENT
  Sex: Male
  Weight: 2.293 kg

DRUGS (4)
  1. ZONISAMIDE [Concomitant]
     Indication: EPILEPSY
     Route: 064
     Dates: start: 20101110, end: 20110425
  2. TEGRETOL [Concomitant]
     Indication: EPILEPSY
     Route: 064
     Dates: start: 20101110, end: 20110425
  3. KEPPRA [Suspect]
     Indication: EPILEPSY
     Route: 064
     Dates: start: 20101214, end: 20110425
  4. GABAPENTIN [Concomitant]
     Indication: EPILEPSY
     Route: 064
     Dates: start: 20101110, end: 20101213

REACTIONS (2)
  - CONGENITAL ANOMALY [None]
  - DRUG EXPOSURE DURING PREGNANCY [None]
